FAERS Safety Report 6525799-X (Version None)
Quarter: 2010Q1

REPORT INFORMATION
  Report Type: 
  Country: None (occurrence: None)
  Receive Date: 20100104
  Receipt Date: 20091228
  Transmission Date: 20100710
  Serious: Yes (Other)
  Sender: FDA-Public Use
  Company Number: A0837175A

PATIENT
  Age: 82 Year
  Sex: Female

DRUGS (9)
  1. ADVAIR DISKUS 100/50 [Suspect]
     Route: 055
     Dates: start: 20050101
  2. FEMARA [Concomitant]
  3. HYZAAR [Concomitant]
  4. ASPIRIN [Concomitant]
  5. GABAPENTIN [Concomitant]
  6. ACTONEL [Concomitant]
  7. CITALOPRAM HYDROBROMIDE [Concomitant]
  8. SYNTHROID [Concomitant]
  9. SYMBICORT [Concomitant]

REACTIONS (5)
  - BLOOD GLUCOSE DECREASED [None]
  - DRUG INEFFECTIVE [None]
  - DYSPHONIA [None]
  - FALL [None]
  - LOSS OF CONSCIOUSNESS [None]
